FAERS Safety Report 4930085-5 (Version None)
Quarter: 2006Q1

REPORT INFORMATION
  Report Type: 
  Country: None (occurrence: None)
  Receive Date: 20060228
  Receipt Date: 20060214
  Transmission Date: 20060701
  Serious: Yes (Hospitalization)
  Sender: FDA-Public Use
  Company Number: 2005P1000473

PATIENT
  Age: 80 Year
  Sex: Male
  Weight: 78 kg

DRUGS (8)
  1. RETEPLASE (RETEPLASE) [Suspect]
     Indication: ACUTE MYOCARDIAL INFARCTION
     Dosage: IV
     Route: 042
     Dates: start: 20050826, end: 20050826
  2. ABCIXIMAB (ABCIXIMAB) [Suspect]
     Indication: ACUTE MYOCARDIAL INFARCTION
     Dosage: IV
     Route: 042
     Dates: start: 20050826, end: 20050827
  3. ACETYLSALICYLATE [Concomitant]
  4. CALCIUM GLUCONATE [Concomitant]
  5. AMLODIPINE [Concomitant]
  6. PROMOCARD [Concomitant]
  7. ROSUVASTATIN [Concomitant]
  8. CLOPIDOGREL [Concomitant]

REACTIONS (17)
  - ANGIODYSPLASIA [None]
  - BLOOD CREATINE PHOSPHOKINASE INCREASED [None]
  - BLOOD CREATINE PHOSPHOKINASE MB INCREASED [None]
  - CHEST DISCOMFORT [None]
  - COLD SWEAT [None]
  - ELECTROCARDIOGRAM ST SEGMENT DEPRESSION [None]
  - ELECTROCARDIOGRAM ST SEGMENT ELEVATION [None]
  - FALL [None]
  - GASTRITIS [None]
  - GASTROINTESTINAL HAEMORRHAGE [None]
  - HAEMATOCRIT DECREASED [None]
  - HAEMOGLOBIN DECREASED [None]
  - HEART RATE DECREASED [None]
  - LOSS OF CONSCIOUSNESS [None]
  - PALLOR [None]
  - PROTHROMBIN LEVEL DECREASED [None]
  - RALES [None]
